FAERS Safety Report 8323708 (Version 2)
Quarter: 2013Q1

REPORT INFORMATION
  Report Type: Spontaneous
  Country: US (occurrence: US)
  Receive Date: 20120105
  Receipt Date: 20130103
  Transmission Date: 20140127
  Serious: No
  Sender: FDA-Public Use
  Company Number: US-ABBOTT-11P-163-0855473-00

PATIENT
  Sex: Female
  Weight: 48.58 kg

DRUGS (5)
  1. SYNTHROID [Suspect]
     Indication: HYPOTHYROIDISM
     Dates: start: 200712
  2. ATIVAN [Concomitant]
     Indication: INSOMNIA
  3. CENTRUM [Concomitant]
     Indication: SUPPLEMENTATION THERAPY
  4. VITAMIN D [Concomitant]
     Indication: SUPPLEMENTATION THERAPY
  5. CALCIUM [Concomitant]
     Indication: SUPPLEMENTATION THERAPY

REACTIONS (3)
  - Feeling cold [Not Recovered/Not Resolved]
  - Alopecia [Not Recovered/Not Resolved]
  - Chills [Not Recovered/Not Resolved]
